FAERS Safety Report 20954116 (Version 2)
Quarter: 2022Q3

REPORT INFORMATION
  Report Type: Other
  Country: CA (occurrence: CA)
  Receive Date: 20220614
  Receipt Date: 20220720
  Transmission Date: 20221027
  Serious: Yes (Hospitalization)
  Sender: FDA-Public Use
  Company Number: CA-CELLTRION INC.-2022CA008809

PATIENT

DRUGS (13)
  1. TRASTUZUMAB [Suspect]
     Active Substance: TRASTUZUMAB
     Indication: Breast cancer
     Dosage: 372 MILLIGRAM, 1 EVERY 3 WEEKS
     Route: 042
  2. TRASTUZUMAB [Suspect]
     Active Substance: TRASTUZUMAB
     Dosage: 192 MILLIGRAM, 1 EVERY 3 WEEKS
     Route: 042
  3. ATIVAN [Concomitant]
     Active Substance: LORAZEPAM
  4. CIPROFLOXACIN [Concomitant]
     Active Substance: CIPROFLOXACIN
  5. DEXAMETHASONE [Concomitant]
     Active Substance: DEXAMETHASONE
     Route: 065
  6. HALDOL [Concomitant]
     Active Substance: HALOPERIDOL
  7. HYDROMORPHONE [Concomitant]
     Active Substance: HYDROMORPHONE
  8. IMODIUM [Concomitant]
     Active Substance: LOPERAMIDE HYDROCHLORIDE
  9. K-DUR [Concomitant]
     Active Substance: POTASSIUM CHLORIDE
  10. PANTOPRAZOLE [Concomitant]
     Active Substance: PANTOPRAZOLE
  11. RIVAROXABAN [Concomitant]
     Active Substance: RIVAROXABAN
  12. PROCHLORPERAZINE [Concomitant]
     Active Substance: PROCHLORPERAZINE
  13. TYLENOL [Concomitant]
     Active Substance: ACETAMINOPHEN

REACTIONS (9)
  - Weight abnormal [Unknown]
  - Hepatic enzyme increased [Unknown]
  - Klebsiella test positive [Unknown]
  - Abdominal pain [Unknown]
  - Fatigue [Unknown]
  - Nausea [Unknown]
  - Vomiting [Unknown]
  - Medication error [Unknown]
  - Off label use [Unknown]
